FAERS Safety Report 4525475-9 (Version None)
Quarter: 2004Q4

REPORT INFORMATION
  Report Type: 
  Country: None (occurrence: None)
  Receive Date: 20041108
  Receipt Date: 20040223
  Transmission Date: 20050328
  Serious: Yes (Life-Threatening, Hospitalization)
  Sender: FDA-Public Use
  Company Number: US-JNJFOC-20040608269

PATIENT
  Age: 45 Year
  Sex: Female

DRUGS (2)
  1. EXTRA STRENGTH TYLENOL [Suspect]
     Indication: DRUG USE FOR UNKNOWN INDICATION
     Dosage: 12.5-150G  ONCE
     Dates: start: 20030209, end: 20030209
  2. ATIVAN [Concomitant]

REACTIONS (2)
  - HEPATIC FAILURE [None]
  - OVERDOSE [None]
